FAERS Safety Report 10478847 (Version 3)
Quarter: 2015Q2

REPORT INFORMATION
  Report Type: Report from Study
  Country: US (occurrence: US)
  Receive Date: 20140926
  Receipt Date: 20150626
  Transmission Date: 20150821
  Serious: Yes (Hospitalization, Disabling)
  Sender: FDA-Public Use
  Company Number: US-SA-2014SA131475

PATIENT
  Age: 61 Year
  Sex: Male

DRUGS (1)
  1. LANTUS [Suspect]
     Active Substance: INSULIN GLARGINE
     Indication: DIABETES MELLITUS
     Dosage: START DATE REPORTED AS : 2 YEARS AGO; 20 UNITS AM AND PM DOSE:20 UNIT(S)
     Route: 065
     Dates: start: 2012

REACTIONS (6)
  - Off label use [Unknown]
  - Peripheral swelling [Unknown]
  - Disability [Unknown]
  - Cardiac failure congestive [Unknown]
  - Hypertension [Recovered/Resolved]
  - Dyspnoea [Unknown]

NARRATIVE: CASE EVENT DATE: 2012
